FAERS Safety Report 19589520 (Version 1)
Quarter: 2021Q3

REPORT INFORMATION
  Report Type: Spontaneous
  Country: US (occurrence: US)
  Receive Date: 20210721
  Receipt Date: 20210721
  Transmission Date: 20211014
  Serious: No
  Sender: FDA-Public Use
  Company Number: US-PFIZER INC-2021493953

PATIENT
  Age: 75 Year
  Sex: Female
  Weight: 101.59 kg

DRUGS (4)
  1. CALCIUM 500+D [Concomitant]
     Active Substance: CALCIUM\VITAMIN D
     Dosage: UNK [CALCIUM + D 500MG?1000 TAB CHEW]
  2. LETROZOLE. [Concomitant]
     Active Substance: LETROZOLE
     Dosage: 2.5 MG (2.5 MG TABLET)
  3. MIRALAX [Concomitant]
     Active Substance: POLYETHYLENE GLYCOL 3350
     Dosage: 17 G (17 G/ DOSE POWDER)
  4. IBRANCE [Suspect]
     Active Substance: PALBOCICLIB
     Indication: BREAST CANCER FEMALE
     Dosage: 100 MG (DAILY FOR 21 DAYS)
     Route: 048
     Dates: start: 201908

REACTIONS (1)
  - Fatigue [Unknown]
